FAERS Safety Report 8176930-4 (Version None)
Quarter: 2012Q1

REPORT INFORMATION
  Report Type: 
  Country: None (occurrence: None)
  Receive Date: 20120301
  Receipt Date: 20120223
  Transmission Date: 20120608
  Serious: Yes (Hospitalization)
  Sender: FDA-Public Use
  Company Number: TW-JNJFOC-20110708557

PATIENT
  Age: 72 Year
  Sex: Female

DRUGS (5)
  1. XARELTO [Suspect]
     Indication: THROMBOSIS PROPHYLAXIS
     Route: 048
     Dates: start: 20101001, end: 20101001
  2. METFORMIN HCL [Concomitant]
  3. XARELTO [Suspect]
     Indication: KNEE ARTHROPLASTY
     Route: 048
     Dates: start: 20101001, end: 20101001
  4. NORVASC [Concomitant]
  5. DIOVAN HCT [Concomitant]

REACTIONS (1)
  - CEREBROVASCULAR ACCIDENT [None]
